FAERS Safety Report 18627491 (Version 1)
Quarter: 2020Q4

REPORT INFORMATION
  Report Type: Spontaneous
  Country: US (occurrence: US)
  Receive Date: 20201216
  Receipt Date: 20201216
  Transmission Date: 20210114
  Serious: No
  Sender: FDA-Public Use
  Company Number: None

PATIENT
  Age: 58 Year
  Sex: Female

DRUGS (1)
  1. FOSAPREPITANT [Suspect]
     Active Substance: FOSAPREPITANT
     Indication: NAUSEA
     Dosage: ?          OTHER FREQUENCY:ONE TIME DOSE;?
     Route: 042

REACTIONS (4)
  - Throat tightness [None]
  - Muscle spasms [None]
  - Chest discomfort [None]
  - Dyspnoea [None]

NARRATIVE: CASE EVENT DATE: 20200421
